FAERS Safety Report 10609166 (Version 3)
Quarter: 2023Q4

REPORT INFORMATION
  Report Type: Spontaneous
  Country: IT (occurrence: IT)
  Receive Date: 20141126
  Receipt Date: 20231204
  Transmission Date: 20240110
  Serious: Yes (Death, Hospitalization, Other)
  Sender: FDA-Public Use
  Company Number: IT-270396

PATIENT
  Age: 64 Year
  Sex: Male

DRUGS (8)
  1. LEVETIRACETAM [Suspect]
     Active Substance: LEVETIRACETAM
     Indication: Partial seizures
     Dosage: 3000 MG, DAILY
     Route: 065
  2. LEVETIRACETAM [Suspect]
     Active Substance: LEVETIRACETAM
     Indication: Partial seizures with secondary generalisation
  3. LACOSAMIDE [Suspect]
     Active Substance: LACOSAMIDE
     Indication: Partial seizures
     Dosage: 200 MG, SINGLE LOADING DOSE
     Route: 048
  4. LACOSAMIDE [Suspect]
     Active Substance: LACOSAMIDE
     Dosage: 100 MG, TWO TIMES A DAY
     Route: 048
  5. LACOSAMIDE [Suspect]
     Active Substance: LACOSAMIDE
     Dosage: 200 MG, TWO TIMES A DAY
     Route: 048
  6. PREGABALIN [Suspect]
     Active Substance: PREGABALIN
     Indication: Partial seizures
     Dosage: 300 MILLIGRAM, ONCE A DAY
     Route: 065
  7. PHENOBARBITAL [Suspect]
     Active Substance: PHENOBARBITAL
     Indication: Partial seizures
     Dosage: 50 MG, ONCE A DAY
     Route: 065
  8. PHENOBARBITAL [Suspect]
     Active Substance: PHENOBARBITAL
     Indication: Partial seizures

REACTIONS (16)
  - Hepatic encephalopathy [Fatal]
  - Stupor [Fatal]
  - Partial seizures with secondary generalisation [Fatal]
  - Seizure [Fatal]
  - Mental status changes [Fatal]
  - Disease progression [Fatal]
  - Partial seizures [Fatal]
  - Metabolic encephalopathy [Fatal]
  - Acute hepatic failure [Fatal]
  - Death [Fatal]
  - Drug intolerance [Fatal]
  - Ammonia increased [Fatal]
  - Somnolence [Fatal]
  - Anticonvulsant drug level below therapeutic [Fatal]
  - Drug ineffective [Fatal]
  - Hepatic failure [Unknown]
